FAERS Safety Report 8188474-4 (Version None)
Quarter: 2012Q1

REPORT INFORMATION
  Report Type: 
  Country: None (occurrence: None)
  Receive Date: 20120306
  Receipt Date: 20120228
  Transmission Date: 20120608
  Serious: Yes (Other)
  Sender: FDA-Public Use
  Company Number: PHHY2012BR018091

PATIENT
  Sex: Female

DRUGS (2)
  1. TEGRETOL-XR [Suspect]
     Dosage: 400 MG, UNK
  2. CARBAMAZEPINE [Suspect]
     Dosage: 400 MG, UNK

REACTIONS (5)
  - CONVULSION [None]
  - HYPERSOMNIA [None]
  - PAIN [None]
  - MALAISE [None]
  - ANXIETY [None]
